FAERS Safety Report 9516741 (Version 2)
Quarter: 2013Q3

REPORT INFORMATION
  Report Type: Spontaneous
  Country: US (occurrence: US)
  Receive Date: 20130911
  Receipt Date: 20130912
  Transmission Date: 20140515
  Serious: No
  Sender: FDA-Public Use
  Company Number: US-ASTRAZENECA-2013SE51470

PATIENT
  Age: 76 Year
  Sex: Female
  Weight: 74.8 kg

DRUGS (1)
  1. SYMBICORT [Suspect]
     Indication: CHRONIC OBSTRUCTIVE PULMONARY DISEASE
     Dosage: 160/4.5, 2 PUFFS BID
     Route: 055
     Dates: start: 20130610

REACTIONS (4)
  - Back pain [Unknown]
  - Dysgeusia [Unknown]
  - Stomatitis [Unknown]
  - Intentional drug misuse [Unknown]
